FAERS Safety Report 5087249-2 (Version None)
Quarter: 2006Q3

REPORT INFORMATION
  Report Type: 
  Country: None (occurrence: None)
  Receive Date: 20060821
  Receipt Date: 20060810
  Transmission Date: 20061208
  Serious: Yes (Other)
  Sender: FDA-Public Use
  Company Number: CAWYE688611AUG06

PATIENT
  Age: 19 Year
  Sex: Female

DRUGS (1)
  1. EFFEXOR XR [Suspect]
     Dosage: ORAL
     Route: 048

REACTIONS (2)
  - DRUG DEPENDENCE [None]
  - INSOMNIA [None]
